FAERS Safety Report 9797014 (Version 1)
Quarter: 2014Q1

REPORT INFORMATION
  Report Type: Spontaneous
  Country: US (occurrence: None)
  Receive Date: 20140102
  Receipt Date: 20140102
  Transmission Date: 20141002
  Serious: Yes (Other)
  Sender: FDA-Public Use
  Company Number: None

PATIENT
  Age: 56 Year
  Sex: Female
  Weight: 53.98 kg

DRUGS (1)
  1. LEVOFLOXACIN [Suspect]
     Indication: URINARY TRACT INFECTION
     Dates: start: 20130520, end: 20131013

REACTIONS (8)
  - Dizziness [None]
  - Tremor [None]
  - Nausea [None]
  - Paraesthesia [None]
  - Anxiety [None]
  - Peripheral coldness [None]
  - Blister [None]
  - Scab [None]
